FAERS Safety Report 7034325-0 (Version None)
Quarter: 2010Q4

REPORT INFORMATION
  Report Type: 
  Country: None (occurrence: None)
  Receive Date: 20101008
  Receipt Date: 20100924
  Transmission Date: 20110411
  Serious: Yes (Other)
  Sender: FDA-Public Use
  Company Number: PHHY2010FR65927

PATIENT
  Age: 60 Year
  Sex: Male

DRUGS (2)
  1. PARLODEL [Suspect]
     Indication: PARKINSON'S DISEASE
     Dosage: 10 MG, QID
     Route: 048
     Dates: end: 20091201
  2. SINEMET [Suspect]
     Indication: PARKINSON'S DISEASE
     Dosage: 1 DF, UNK
     Route: 048
     Dates: end: 20091201

REACTIONS (4)
  - OEDEMA PERIPHERAL [None]
  - PULMONARY EMBOLISM [None]
  - RENAL FAILURE [None]
  - RETROPERITONEAL FIBROSIS [None]
